FAERS Safety Report 5272548-1 (Version None)
Quarter: 2007Q1

REPORT INFORMATION
  Report Type: 
  Country: None (occurrence: None)
  Receive Date: 20070322
  Receipt Date: 20070316
  Transmission Date: 20070707
  Serious: Yes (Death, Hospitalization)
  Sender: FDA-Public Use
  Company Number: FR-AVENTIS-200710959FR

PATIENT
  Sex: Male

DRUGS (3)
  1. TAXOTERE [Suspect]
     Route: 042
     Dates: start: 20070101, end: 20070101
  2. CISPLATIN [Suspect]
     Route: 042
     Dates: start: 20070101, end: 20070101
  3. ANTIHYPERTENSIVES [Concomitant]
     Indication: HYPERTENSION

REACTIONS (3)
  - DEHYDRATION [None]
  - DIARRHOEA [None]
  - RENAL FAILURE [None]
